FAERS Safety Report 8785123 (Version 2)
Quarter: 2013Q2

REPORT INFORMATION
  Report Type: Spontaneous
  Country: US (occurrence: US)
  Receive Date: 20120914
  Receipt Date: 20130503
  Transmission Date: 20140414
  Serious: Yes (Other)
  Sender: FDA-Public Use
  Company Number: US-ASTRAZENECA-2012SE64751

PATIENT
  Age: 47 Year
  Sex: Female
  Weight: 66.7 kg

DRUGS (3)
  1. TOPROL XL [Suspect]
     Route: 048
  2. ZOLOFT (PFIZER) [Suspect]
     Route: 065
  3. VITAMINS [Concomitant]

REACTIONS (9)
  - Exposure during pregnancy [Unknown]
  - Abortion spontaneous [Unknown]
  - Arrhythmogenic right ventricular dysplasia [Unknown]
  - Neoplasm malignant [Unknown]
  - Cardiac disorder [Unknown]
  - Endometriosis [Unknown]
  - Blood cholesterol increased [Recovered/Resolved]
  - Blood triglycerides increased [Not Recovered/Not Resolved]
  - Asthma [Unknown]
